APPROVED DRUG PRODUCT: HYDRALAZINE HYDROCHLORIDE
Active Ingredient: HYDRALAZINE HYDROCHLORIDE
Strength: 25MG
Dosage Form/Route: TABLET;ORAL
Application: A088560 | Product #001
Applicant: ACTAVIS ELIZABETH LLC
Approved: Oct 4, 1984 | RLD: No | RS: No | Type: DISCN